FAERS Safety Report 18717382 (Version 1)
Quarter: 2021Q1

REPORT INFORMATION
  Report Type: Spontaneous
  Country: IT (occurrence: IT)
  Receive Date: 20210108
  Receipt Date: 20210108
  Transmission Date: 20210419
  Serious: Yes (Death, Hospitalization)
  Sender: FDA-Public Use
  Company Number: IT-MYLANLABS-2021M1000506

PATIENT
  Sex: Female

DRUGS (1)
  1. AMIODARONE [Suspect]
     Active Substance: AMIODARONE
     Indication: CARDIAC FAILURE ACUTE
     Dosage: UNK
     Route: 065

REACTIONS (4)
  - Septic shock [Fatal]
  - Escherichia infection [Unknown]
  - Toxic epidermal necrolysis [Fatal]
  - Acute respiratory failure [Fatal]
